FAERS Safety Report 22319902 (Version 7)
Quarter: 2024Q2

REPORT INFORMATION
  Report Type: Spontaneous
  Country: DE (occurrence: DE)
  Receive Date: 20230515
  Receipt Date: 20240401
  Transmission Date: 20240716
  Serious: Yes (Other)
  Sender: FDA-Public Use
  Company Number: US-VERTEX PHARMACEUTICALS-2023-006778

PATIENT
  Sex: Female

DRUGS (13)
  1. TRIKAFTA [Suspect]
     Active Substance: ELEXACAFTOR\IVACAFTOR\TEZACAFTOR
     Indication: Cystic fibrosis
     Dosage: 2 RED PILLS ON ONE DAY AND 1 BLUE PILL ON ANOTHER DAY
     Route: 048
  2. TRIKAFTA [Suspect]
     Active Substance: ELEXACAFTOR\IVACAFTOR\TEZACAFTOR
     Dosage: 1 RED PILL IN AM AND 1 RED PILL IN PM, NO BLUE TAB
     Route: 048
  3. TRIKAFTA [Suspect]
     Active Substance: ELEXACAFTOR\IVACAFTOR\TEZACAFTOR
     Dosage: 1 RED PILL ONE DAY AND 1 AND HALF PILL ON ANOTHER DAY
     Route: 048
  4. TRIKAFTA [Suspect]
     Active Substance: ELEXACAFTOR\IVACAFTOR\TEZACAFTOR
     Dosage: 1 AND HALF RED PILL EVERY DAY
     Route: 048
  5. TRIKAFTA [Suspect]
     Active Substance: ELEXACAFTOR\IVACAFTOR\TEZACAFTOR
     Dosage: 1 RED PILL ONE DAY AND 1 AND HALF PILL ON ANOTHER DAY
     Route: 048
  6. TRIKAFTA [Suspect]
     Active Substance: ELEXACAFTOR\IVACAFTOR\TEZACAFTOR
     Dosage: 1 RED PILL ONE DAY AND 1 AND HALF PILL ON ANOTHER DAY
     Route: 048
  7. TRIKAFTA [Suspect]
     Active Substance: ELEXACAFTOR\IVACAFTOR\TEZACAFTOR
     Dosage: 1 RED PILL ONE DAY AND 1 AND HALF PILL ON ANOTHER DAY
     Route: 048
  8. TRIKAFTA [Suspect]
     Active Substance: ELEXACAFTOR\IVACAFTOR\TEZACAFTOR
     Dosage: 2 RED PILLS ON ONE DAY AND 1 BLUE PILL ON ANOTHER DAY
     Route: 048
  9. TRIKAFTA [Suspect]
     Active Substance: ELEXACAFTOR\IVACAFTOR\TEZACAFTOR
     Dosage: 1 RED PILL IN AM AND 1 RED PILL IN PM
     Route: 048
  10. TRIKAFTA [Suspect]
     Active Substance: ELEXACAFTOR\IVACAFTOR\TEZACAFTOR
     Dosage: 1 AND HALF RED PILL EVERY DAY
     Route: 048
  11. TRIKAFTA [Suspect]
     Active Substance: ELEXACAFTOR\IVACAFTOR\TEZACAFTOR
     Dosage: 1 RED PILL ONE DAY AND 1 AND HALF PILL ON ANOTHER DAY
     Route: 048
  12. DESOGESTREL [Suspect]
     Active Substance: DESOGESTREL
     Indication: Hormone level abnormal
     Dosage: UNKNOWN
     Route: 065
  13. INSULIN NOS [Concomitant]
     Active Substance: INSULIN NOS

REACTIONS (30)
  - Suicidal ideation [Unknown]
  - Attention deficit hyperactivity disorder [Unknown]
  - Dry eye [Not Recovered/Not Resolved]
  - Hyperhidrosis [Unknown]
  - Seborrhoea [Unknown]
  - Libido increased [Unknown]
  - Autoimmune disorder [Not Recovered/Not Resolved]
  - Inflammation [Not Recovered/Not Resolved]
  - Ovulation pain [Recovered/Resolved]
  - Oestrogen deficiency [Not Recovered/Not Resolved]
  - Premenstrual dysphoric disorder [Unknown]
  - Hormone level abnormal [Recovered/Resolved]
  - Hepatic function abnormal [Unknown]
  - Anxiety [Unknown]
  - Panic attack [Recovering/Resolving]
  - Feeling abnormal [Unknown]
  - Cerebral disorder [Unknown]
  - Somnolence [Unknown]
  - Bipolar I disorder [Recovered/Resolved]
  - Illness [Unknown]
  - Emotional disorder [Recovered/Resolved]
  - Infection [Unknown]
  - Metabolic disorder [Unknown]
  - Mood swings [Recovered/Resolved]
  - Psychomotor hyperactivity [Unknown]
  - Menstrual disorder [Unknown]
  - Intermenstrual bleeding [Recovered/Resolved]
  - Depression [Unknown]
  - Dysmenorrhoea [Recovered/Resolved]
  - Acne [Unknown]
